FAERS Safety Report 23863770 (Version 1)
Quarter: 2024Q2

REPORT INFORMATION
  Report Type: Spontaneous
  Country: US (occurrence: None)
  Receive Date: 20240516
  Receipt Date: 20240516
  Transmission Date: 20240715
  Serious: Yes (Hospitalization)
  Sender: FDA-Public Use
  Company Number: None

PATIENT
  Age: 40 Year
  Sex: Female
  Weight: 61.3 kg

DRUGS (2)
  1. ERBITUX [Suspect]
     Active Substance: CETUXIMAB
     Dates: end: 20240430
  2. TAXOTERE [Suspect]
     Active Substance: DOCETAXEL
     Dates: end: 20240423

REACTIONS (3)
  - Mucosal inflammation [None]
  - Hypophagia [None]
  - Squamous cell carcinoma of the oral cavity [None]

NARRATIVE: CASE EVENT DATE: 20240502
